FAERS Safety Report 9435696 (Version 1)
Quarter: 2013Q3

REPORT INFORMATION
  Report Type: Spontaneous
  Country: US (occurrence: US)
  Receive Date: 20130730
  Receipt Date: 20130730
  Transmission Date: 20140515
  Serious: Yes (Other)
  Sender: FDA-Public Use
  Company Number: 2013AP006848

PATIENT
  Age: 69 Year
  Sex: Female

DRUGS (2)
  1. ATORVASTATIN [Suspect]
     Indication: BLOOD CHOLESTEROL INCREASED
     Route: 048
     Dates: start: 201305
  2. CRESTOR [Concomitant]

REACTIONS (6)
  - Muscular weakness [None]
  - Neuralgia [None]
  - Neuritis [None]
  - Arthralgia [None]
  - Urinary tract infection [None]
  - Muscle spasms [None]
